FAERS Safety Report 5141935-4 (Version None)
Quarter: 2006Q4

REPORT INFORMATION
  Report Type: 
  Country: None (occurrence: None)
  Receive Date: 20061102
  Receipt Date: 20040419
  Transmission Date: 20070319
  Serious: Yes (Hospitalization)
  Sender: FDA-Public Use
  Company Number: PHRM2004FR01568

PATIENT
  Age: 78 Year
  Sex: Female

DRUGS (1)
  1. GLEEVEC [Suspect]
     Indication: CHRONIC MYELOID LEUKAEMIA
     Route: 048
     Dates: start: 20031105, end: 20040204

REACTIONS (7)
  - DERMATITIS EXFOLIATIVE [None]
  - EOSINOPHILIA [None]
  - HYPERSENSITIVITY [None]
  - LYMPHADENOPATHY [None]
  - PRURITUS [None]
  - RASH ERYTHEMATOUS [None]
  - TOXIC SKIN ERUPTION [None]
